FAERS Safety Report 9483875 (Version 2)
Quarter: 2013Q3

REPORT INFORMATION
  Report Type: Spontaneous
  Country: CA (occurrence: CA)
  Receive Date: 20130828
  Receipt Date: 20130828
  Transmission Date: 20140515
  Serious: Yes (Hospitalization)
  Sender: FDA-Public Use
  Company Number: CA-AMGEN-KDL325554

PATIENT
  Age: 55 Year
  Sex: Female
  Weight: 59 kg

DRUGS (5)
  1. ENBREL [Suspect]
     Indication: RHEUMATOID ARTHRITIS
     Dosage: UNK UNK, QWK
     Route: 065
     Dates: start: 20081210
  2. METHOTREXATE [Concomitant]
     Dosage: UNK UNK, UNK
     Route: 058
  3. HYDROXYCHLOROQUINE SULFATE [Concomitant]
  4. SULFASALAZINE [Concomitant]
  5. MELOXICAM [Concomitant]

REACTIONS (4)
  - Renal disorder [Unknown]
  - Back pain [Not Recovered/Not Resolved]
  - Furuncle [Recovering/Resolving]
  - Nausea [Unknown]
